FAERS Safety Report 8778470 (Version 2)
Quarter: 2012Q4

REPORT INFORMATION
  Report Type: Report from Study
  Country: JP (occurrence: JP)
  Receive Date: 20120912
  Receipt Date: 20121003
  Transmission Date: 20130627
  Serious: Yes (Hospitalization)
  Sender: FDA-Public Use
  Company Number: JP-GLAXOSMITHKLINE-B0828733A

PATIENT
  Age: 50 Year
  Sex: Female
  Weight: 39 kg

DRUGS (11)
  1. TYKERB [Suspect]
     Indication: BREAST CANCER
     Route: 048
     Dates: start: 20120216, end: 20120308
  2. TYKERB [Suspect]
     Indication: BREAST CANCER
     Route: 048
     Dates: start: 20120322, end: 20120613
  3. TYKERB [Suspect]
     Indication: BREAST CANCER
     Route: 048
     Dates: start: 20120711
  4. XELODA [Suspect]
     Route: 048
     Dates: start: 20120216, end: 20120308
  5. XELODA [Suspect]
     Route: 048
     Dates: start: 20120322, end: 20120424
  6. XELODA [Suspect]
     Route: 048
     Dates: start: 20120502, end: 20120613
  7. XELODA [Suspect]
     Route: 048
     Dates: start: 20120711, end: 20120821
  8. XELODA [Suspect]
     Route: 048
     Dates: start: 20120822
  9. PYDOXAL [Concomitant]
     Indication: PROPHYLAXIS
     Route: 048
     Dates: start: 20120216
  10. HIRUDOID [Concomitant]
     Indication: PROPHYLAXIS
     Route: 065
     Dates: start: 20120216
  11. ZOMETA [Concomitant]
     Indication: METASTASES TO BONE
     Route: 042
     Dates: start: 20070801

REACTIONS (1)
  - Cellulitis [Recovered/Resolved]
